FAERS Safety Report 7155342-6 (Version None)
Quarter: 2010Q4

REPORT INFORMATION
  Report Type: 
  Country: None (occurrence: None)
  Receive Date: 20101214
  Receipt Date: 20101203
  Transmission Date: 20110411
  Serious: Yes (Hospitalization, Other)
  Sender: FDA-Public Use
  Company Number: US-BIOGENIDEC-2010BI015249

PATIENT
  Age: 55 Year
  Sex: Female
  Weight: 90 kg

DRUGS (2)
  1. AVONEX [Suspect]
     Indication: MULTIPLE SCLEROSIS
     Route: 030
     Dates: start: 19970101, end: 20030101
  2. AVONEX [Suspect]
     Route: 030
     Dates: start: 20030101

REACTIONS (14)
  - CLUMSINESS [None]
  - DYSPHONIA [None]
  - FALL [None]
  - LARYNGEAL DISORDER [None]
  - MULTIPLE SCLEROSIS RELAPSE [None]
  - MUSCLE SPASMS [None]
  - OESOPHAGEAL DISORDER [None]
  - PARALYSIS [None]
  - PNEUMONIA [None]
  - SKIN MASS [None]
  - SPINAL COMPRESSION FRACTURE [None]
  - STAPHYLOCOCCAL INFECTION [None]
  - STAPHYLOCOCCAL OSTEOMYELITIS [None]
  - UNINTENTIONAL MEDICAL DEVICE REMOVAL BY PATIENT [None]
